APPROVED DRUG PRODUCT: CYLERT
Active Ingredient: PEMOLINE
Strength: 75MG
Dosage Form/Route: TABLET;ORAL
Application: N016832 | Product #003
Applicant: ABBOTT LABORATORIES PHARMACEUTICAL PRODUCTS DIV
Approved: Approved Prior to Jan 1, 1982 | RLD: No | RS: No | Type: DISCN